FAERS Safety Report 5762055-1 (Version None)
Quarter: 2008Q2

REPORT INFORMATION
  Report Type: 
  Country: None (occurrence: None)
  Receive Date: 20080604
  Receipt Date: 20080526
  Transmission Date: 20081010
  Serious: Yes (Hospitalization)
  Sender: FDA-Public Use
  Company Number: GXKR2008GB03982

PATIENT
  Age: 69 Year
  Sex: Male

DRUGS (4)
  1. ACETYLSALICYCLIC ACID (NGX) (ACETYLSALICYLIC ACID) UNKNOWN [Suspect]
     Indication: ATRIAL FIBRILLATION
     Dosage: 75 MG, ORAL
     Route: 048
     Dates: end: 20080417
  2. BENDROFLUMETHIAZIDE (NGX) (GENDROFLUMETHIAZIDE) [Suspect]
     Indication: HYPERTENSION
     Dosage: 2.5 MG, ORAL
     Route: 048
  3. MUCODYNE (CARBOCISTEINE) [Suspect]
     Indication: NASOPHARYNGITIS
     Dosage: 375 MG, TID, ORAL
     Route: 048
     Dates: start: 20080328
  4. BISOPROLOL FUMARATE [Concomitant]

REACTIONS (3)
  - EPISTAXIS [None]
  - IDIOPATHIC THROMBOCYTOPENIC PURPURA [None]
  - INCREASED TENDENCY TO BRUISE [None]
